FAERS Safety Report 6103043-5 (Version None)
Quarter: 2009Q1

REPORT INFORMATION
  Report Type: 
  Country: None (occurrence: None)
  Receive Date: 20090305
  Receipt Date: 20090225
  Transmission Date: 20090719
  Serious: Yes (Hospitalization)
  Sender: FDA-Public Use
  Company Number: AT-JNJFOC-20090205901

PATIENT
  Age: 79 Year
  Sex: Female
  Weight: 58 kg

DRUGS (5)
  1. DURAGESIC-100 [Suspect]
     Route: 062
  2. DURAGESIC-100 [Suspect]
     Indication: DRUG USE FOR UNKNOWN INDICATION
     Route: 062
  3. NAPROXEN [Suspect]
     Indication: DRUG USE FOR UNKNOWN INDICATION
     Route: 065
  4. NOVALGIN [Concomitant]
     Route: 065
  5. METOCLOPRAMIDE HYDROCHLORIDE [Concomitant]
     Route: 065

REACTIONS (4)
  - FAECALOMA [None]
  - GASTRIC ULCER [None]
  - HOSPITALISATION [None]
  - VOMITING [None]
